FAERS Safety Report 5175053-6 (Version None)
Quarter: 2006Q4

REPORT INFORMATION
  Report Type: 
  Country: None (occurrence: None)
  Receive Date: 20061214
  Receipt Date: 20060530
  Transmission Date: 20070319
  Serious: No
  Sender: FDA-Public Use
  Company Number: US-AMGEN-KDL181191

PATIENT
  Sex: Female

DRUGS (2)
  1. ENBREL [Suspect]
     Indication: PSORIATIC ARTHROPATHY
     Route: 058
     Dates: start: 20060523
  2. METHOTREXATE [Concomitant]
     Route: 058
     Dates: start: 20051101

REACTIONS (3)
  - DIZZINESS [None]
  - INJECTION SITE IRRITATION [None]
  - SINUS HEADACHE [None]
